FAERS Safety Report 24777836 (Version 1)
Quarter: 2024Q4

REPORT INFORMATION
  Report Type: Spontaneous
  Country: US (occurrence: None)
  Receive Date: 20241225
  Receipt Date: 20241225
  Transmission Date: 20250115
  Serious: Yes (Hospitalization)
  Sender: Public
  Company Number: None

PATIENT
  Sex: Male
  Weight: 116.8 kg

DRUGS (2)
  1. TAXOTERE [Suspect]
     Active Substance: DOCETAXEL
  2. GEMCITABINE HYDROCHLORIDE [Suspect]
     Active Substance: GEMCITABINE HYDROCHLORIDE

REACTIONS (10)
  - Fall [None]
  - Gait disturbance [None]
  - Arthralgia [None]
  - Asthenia [None]
  - Chills [None]
  - Pyrexia [None]
  - Productive cough [None]
  - Atelectasis [None]
  - Bacterial infection [None]
  - Pneumonia [None]

NARRATIVE: CASE EVENT DATE: 20241207
